FAERS Safety Report 9639161 (Version 2)
Quarter: 2013Q4

REPORT INFORMATION
  Report Type: Spontaneous
  Country: US (occurrence: US)
  Receive Date: 20131022
  Receipt Date: 20131022
  Transmission Date: 20140711
  Serious: Yes (Hospitalization)
  Sender: FDA-Public Use
  Company Number: US-UCBSA-009499

PATIENT
  Age: 58 Year
  Sex: Male

DRUGS (3)
  1. CIMZIA [Suspect]
     Indication: CROHN^S DISEASE
     Route: 058
     Dates: start: 20091116
  2. CIMZIA [Suspect]
     Indication: CROHN^S DISEASE
     Route: 058
     Dates: start: 20130930
  3. PREDNISONE [Concomitant]
     Indication: INFLAMMATION
     Dosage: 2.5 MG DAILY
     Route: 048

REACTIONS (2)
  - Pneumonia [Recovered/Resolved]
  - Inappropriate schedule of drug administration [Unknown]
